FAERS Safety Report 4628200-6 (Version None)
Quarter: 2005Q2

REPORT INFORMATION
  Report Type: 
  Country: None (occurrence: None)
  Receive Date: 20050401
  Receipt Date: 20050323
  Transmission Date: 20051028
  Serious: Yes (Death)
  Sender: FDA-Public Use
  Company Number: USA-2005-0019454

PATIENT
  Age: 61 Year
  Sex: Female

DRUGS (4)
  1. OXYCONTIN [Suspect]
     Dosage: 10 MG, ORAL
     Route: 048
  2. DILAUDID [Suspect]
     Dosage: 0.5 MG, IV BOLUS; 50 MG, IV BOLUS
     Route: 040
  3. RESTORIL [Suspect]
     Dosage: 0.5 MG, ORAL
     Route: 048
  4. COUMADIN [Concomitant]

REACTIONS (8)
  - ARRHYTHMIA [None]
  - DRUG EFFECT DECREASED [None]
  - DRUG INTERACTION [None]
  - FEELING COLD [None]
  - MEDICATION ERROR [None]
  - MUSCULOSKELETAL STIFFNESS [None]
  - RESPIRATORY DEPRESSION [None]
  - SCIATICA [None]
